FAERS Safety Report 7994207-4 (Version None)
Quarter: 2011Q4

REPORT INFORMATION
  Report Type: 
  Country: None (occurrence: None)
  Receive Date: 20111220
  Receipt Date: 20110615
  Transmission Date: 20120403
  Serious: No
  Sender: FDA-Public Use
  Company Number: US-GLAXOSMITHKLINE-A0931630A

PATIENT
  Sex: Male

DRUGS (2)
  1. PROPAFENONE HYDROCHLORIDE [Suspect]
     Route: 048
  2. VERAPAMIL [Concomitant]

REACTIONS (1)
  - ACCIDENTAL EXPOSURE [None]
